FAERS Safety Report 7464824-9 (Version None)
Quarter: 2011Q2

REPORT INFORMATION
  Report Type: 
  Country: None (occurrence: None)
  Receive Date: 20110509
  Receipt Date: 20110427
  Transmission Date: 20111010
  Serious: Yes (Hospitalization)
  Sender: FDA-Public Use
  Company Number: FR-BAYER-2011-022902

PATIENT
  Age: 46 Year
  Sex: Female
  Weight: 52 kg

DRUGS (1)
  1. MIRENA [Suspect]
     Indication: PRODUCT USED FOR UNKNOWN INDICATION
     Dosage: 20 ?G, CONT
     Route: 015
     Dates: start: 20091027, end: 20101106

REACTIONS (6)
  - ABDOMINAL PAIN LOWER [None]
  - PELVIC PAIN [None]
  - PYREXIA [None]
  - BACK PAIN [None]
  - ABDOMINAL PAIN [None]
  - SALPINGITIS [None]
